FAERS Safety Report 7293372-4 (Version None)
Quarter: 2011Q1

REPORT INFORMATION
  Report Type: 
  Country: None (occurrence: None)
  Receive Date: 20110215
  Receipt Date: 20110210
  Transmission Date: 20110831
  Serious: Yes (Death, Other)
  Sender: FDA-Public Use
  Company Number: NO-PFIZER INC-2011029878

PATIENT
  Age: 71 Year
  Sex: Male

DRUGS (6)
  1. ALBYL-E [Concomitant]
     Indication: CARDIOVASCULAR DISORDER
     Route: 048
  2. METOPROLOL TARTRATE [Concomitant]
     Indication: CARDIOVASCULAR DISORDER
     Route: 048
  3. MUCOMYST [Concomitant]
     Indication: PULMONARY FIBROSIS
     Route: 048
     Dates: start: 20090401
  4. LIPITOR [Suspect]
     Indication: CARDIOVASCULAR DISORDER
     Route: 048
     Dates: start: 20060101, end: 20110118
  5. IMUREL [Interacting]
     Indication: PULMONARY FIBROSIS
     Route: 048
     Dates: start: 20090601, end: 20110118
  6. DIURAL [Concomitant]
     Indication: CARDIAC FAILURE
     Route: 048

REACTIONS (6)
  - DEATH [None]
  - DRUG INTERACTION [None]
  - MYOCARDIAL INFARCTION [None]
  - RENAL FAILURE ACUTE [None]
  - ACUTE HEPATIC FAILURE [None]
  - RHABDOMYOLYSIS [None]
